FAERS Safety Report 11797045 (Version 1)
Quarter: 2015Q4

REPORT INFORMATION
  Report Type: Spontaneous
  Country: US (occurrence: None)
  Receive Date: 20151202
  Receipt Date: 20151202
  Transmission Date: 20160305
  Serious: Yes (Disabling)
  Sender: FDA-Public Use
  Company Number: None

PATIENT
  Age: 26 Year
  Sex: Female
  Weight: 68.04 kg

DRUGS (9)
  1. NUVARING [Concomitant]
     Active Substance: ETHINYL ESTRADIOL\ETONOGESTREL
  2. VITAMIN D [Concomitant]
     Active Substance: CHOLECALCIFEROL
  3. CALCIUM [Concomitant]
     Active Substance: CALCIUM
  4. PHENTERMINE. [Suspect]
     Active Substance: PHENTERMINE
     Indication: WEIGHT CONTROL
     Dosage: 1 PILL
     Route: 048
     Dates: start: 20141015, end: 20150213
  5. FLUOXETINE HCL [Suspect]
     Active Substance: FLUOXETINE HYDROCHLORIDE
     Indication: WEIGHT CONTROL
     Dosage: 1 PILL
     Route: 048
     Dates: start: 20141015, end: 20150213
  6. MULTIVITAMIN (RAINBOW LIGHT ACTIVE TEEN) [Concomitant]
  7. MAGNESIUM [Concomitant]
     Active Substance: MAGNESIUM
  8. VITAMIN C [Concomitant]
     Active Substance: ASCORBIC ACID
  9. PROBIOTICS [Concomitant]
     Active Substance: PROBIOTICS NOS

REACTIONS (25)
  - Mood swings [None]
  - Confusional state [None]
  - Vascular pain [None]
  - Sleep attacks [None]
  - Blood pressure orthostatic abnormal [None]
  - Activities of daily living impaired [None]
  - Delusion [None]
  - Impaired self-care [None]
  - Hallucination [None]
  - Headache [None]
  - Paraesthesia [None]
  - Obsessive thoughts [None]
  - Head discomfort [None]
  - Thinking abnormal [None]
  - Panic attack [None]
  - Mental disorder [None]
  - Feeling abnormal [None]
  - Paranoia [None]
  - Impaired work ability [None]
  - Bruxism [None]
  - Nightmare [None]
  - Fear [None]
  - Impaired driving ability [None]
  - Pain in extremity [None]
  - Hypoaesthesia [None]

NARRATIVE: CASE EVENT DATE: 20150213
